FAERS Safety Report 5445824-7 (Version None)
Quarter: 2007Q3

REPORT INFORMATION
  Report Type: 
  Country: None (occurrence: None)
  Receive Date: 20070904
  Receipt Date: 20070820
  Transmission Date: 20080115
  Serious: Yes (Other)
  Sender: FDA-Public Use
  Company Number: 2007RR-09441

PATIENT
  Age: 13 Year
  Sex: Female

DRUGS (2)
  1. FLUOXETINE [Suspect]
     Indication: OBSESSIVE-COMPULSIVE DISORDER
     Dosage: 10 MG, QD, 30 MG QD
  2. RISPERIDONE 0.5MG FILM-COATED TABLETS (RISPERIDONE) [Concomitant]

REACTIONS (8)
  - CONDITION AGGRAVATED [None]
  - DECREASED ACTIVITY [None]
  - DECREASED APPETITE [None]
  - ECHOLALIA [None]
  - HYPERSOMNIA [None]
  - OBSESSIVE-COMPULSIVE DISORDER [None]
  - PSYCHOTIC DISORDER [None]
  - SELF INJURIOUS BEHAVIOUR [None]
